FAERS Safety Report 10958189 (Version 1)
Quarter: 2015Q1

REPORT INFORMATION
  Report Type: Spontaneous
  Country: JP (occurrence: JP)
  Receive Date: 20150326
  Receipt Date: 20150326
  Transmission Date: 20150721
  Serious: Yes (Death, Other)
  Sender: FDA-Public Use
  Company Number: GXJP2015JP000637

PATIENT
  Age: 74 Year
  Sex: Female

DRUGS (4)
  1. CARBOPLATIN. [Suspect]
     Active Substance: CARBOPLATIN
     Indication: SMALL CELL LUNG CANCER
     Route: 042
  2. CARBOPLATIN. [Suspect]
     Active Substance: CARBOPLATIN
     Indication: CHEMOTHERAPY
  3. ETOPOSIDE. [Suspect]
     Active Substance: ETOPOSIDE
     Indication: CHEMOTHERAPY
  4. ETOPOSIDE. [Suspect]
     Active Substance: ETOPOSIDE
     Indication: SMALL CELL LUNG CANCER
     Route: 065

REACTIONS (14)
  - Circulatory collapse [Unknown]
  - Cerebral atrophy [Unknown]
  - Atrophy [Unknown]
  - Drug ineffective [Unknown]
  - Cachexia [Fatal]
  - Malignant neoplasm progression [Fatal]
  - Pneumonia [Fatal]
  - Hepatic failure [Fatal]
  - Bronchopneumonia [Unknown]
  - Cerebral infarction [Unknown]
  - Emphysema [Unknown]
  - Necrosis [Unknown]
  - Rosai-Dorfman syndrome [Unknown]
  - Histiocytosis haematophagic [Unknown]
